FAERS Safety Report 6089215-7 (Version None)
Quarter: 2009Q1

REPORT INFORMATION
  Report Type: 
  Country: None (occurrence: None)
  Receive Date: 20090224
  Receipt Date: 20081204
  Transmission Date: 20090719
  Serious: Yes (Death)
  Sender: FDA-Public Use
  Company Number: IT-PFIZER INC-2008101274

PATIENT

DRUGS (19)
  1. BLINDED *PLACEBO [Suspect]
     Indication: SYSTEMIC CANDIDA
     Dosage: UNK
  2. BLINDED ANIDULAFUNGIN [Suspect]
     Indication: SYSTEMIC CANDIDA
     Dosage: UNK
  3. VORICONAZOLE [Suspect]
     Indication: ASPERGILLOSIS
     Dosage: 540 MG, 2X/DAY
     Route: 042
     Dates: start: 20081127, end: 20081127
  4. VORICONAZOLE [Suspect]
     Dosage: 360 MG, 2X/DAY
     Dates: start: 20081128, end: 20081129
  5. ATENOLOL [Concomitant]
     Route: 048
  6. OMEPRAZOLE [Concomitant]
     Route: 042
     Dates: start: 20081118
  7. CASPOFUNGIN [Concomitant]
     Route: 042
     Dates: start: 20081121, end: 20081123
  8. FUROSEMIDE [Concomitant]
     Route: 042
     Dates: start: 20081118
  9. SEACOR [Concomitant]
     Route: 048
  10. UGUROL [Concomitant]
     Route: 048
     Dates: start: 20081112
  11. FOLINA [Concomitant]
     Route: 048
     Dates: end: 20081122
  12. PYRIDOXINE HYDROCHLORIDE [Concomitant]
     Route: 048
     Dates: end: 20081122
  13. TAZOCIN [Concomitant]
     Route: 042
     Dates: start: 20081118, end: 20081121
  14. AMIKACIN [Concomitant]
     Route: 042
     Dates: start: 20081118, end: 20081124
  15. MEROPENEM [Concomitant]
     Route: 042
     Dates: start: 20081122
  16. KONAKION [Concomitant]
     Route: 042
     Dates: start: 20081122
  17. TARGOCID [Concomitant]
     Route: 042
     Dates: start: 20081124
  18. ENTEROGERMINA [Concomitant]
     Route: 048
     Dates: start: 20081128
  19. ALL OTHER THERAPEUTIC PRODUCTS [Concomitant]
     Dosage: UNK
     Dates: end: 20081127

REACTIONS (2)
  - ACUTE RESPIRATORY DISTRESS SYNDROME [None]
  - ARRHYTHMIA [None]
